FAERS Safety Report 22526167 (Version 1)
Quarter: 2023Q2

REPORT INFORMATION
  Report Type: Spontaneous
  Country: CN (occurrence: CN)
  Receive Date: 20230606
  Receipt Date: 20230606
  Transmission Date: 20230721
  Serious: Yes (Life-Threatening)
  Sender: FDA-Public Use
  Company Number: CN-BAYER-2023A078202

PATIENT
  Age: 58 Year
  Sex: Female

DRUGS (2)
  1. ULTRAVIST [Suspect]
     Active Substance: IOPROMIDE
     Indication: Computerised tomogram abdomen
     Dosage: 61 ML, ONCE
     Route: 041
     Dates: start: 20230530, end: 20230530
  2. ULTRAVIST [Suspect]
     Active Substance: IOPROMIDE
     Indication: Computerised tomogram pelvis

REACTIONS (5)
  - Vomiting [Recovering/Resolving]
  - Nausea [None]
  - Hyperhidrosis [None]
  - Suffocation feeling [None]
  - Incorrect drug administration rate [None]

NARRATIVE: CASE EVENT DATE: 20230530
